FAERS Safety Report 5758194-1 (Version None)
Quarter: 2008Q2

REPORT INFORMATION
  Report Type: 
  Country: None (occurrence: None)
  Receive Date: 20080604
  Receipt Date: 20080530
  Transmission Date: 20081010
  Serious: Yes (Hospitalization)
  Sender: FDA-Public Use
  Company Number: GB-RANBAXY-2008RR-15465

PATIENT

DRUGS (13)
  1. FLECAINIDE RPG 100 MG COMPRIME SECABLE [Suspect]
     Indication: ATRIAL FIBRILLATION
     Dosage: 50 MG, BID
     Route: 048
  2. FLECAINIDE RPG 100 MG COMPRIME SECABLE [Suspect]
     Dosage: 100 MG, BID
  3. DILTIAZEM [Concomitant]
  4. CLOPIDOGREL [Concomitant]
  5. GLICLAZIDE [Concomitant]
  6. METOPROLOL TARTRATE [Concomitant]
  7. RAMIPRIL [Concomitant]
  8. ATORVASTATIN [Concomitant]
  9. RIFAMPICIN [Concomitant]
     Dosage: 450 MG, QD
  10. ETHANBUTOL [Concomitant]
     Dosage: 900 MG, UNK
  11. PYRAZINAMIDE [Concomitant]
     Dosage: 1.5 G, UNK
  12. PYRIDOXINE [Concomitant]
     Dosage: 50 MG, UNK
  13. ISONIAZID [Concomitant]
     Dosage: 200 MG, UNK

REACTIONS (1)
  - ENCEPHALOPATHY [None]
